FAERS Safety Report 25342324 (Version 1)
Quarter: 2025Q2

REPORT INFORMATION
  Report Type: Spontaneous
  Country: US (occurrence: None)
  Receive Date: 20250520
  Receipt Date: 20250520
  Transmission Date: 20250717
  Serious: Yes (Other)
  Sender: FDA-CTU
  Company Number: None

PATIENT
  Age: 29 Year
  Sex: Female
  Weight: 162 kg

DRUGS (5)
  1. ZYRTEC [Suspect]
     Active Substance: CETIRIZINE HYDROCHLORIDE
     Indication: Seasonal allergy
     Dates: start: 20200501, end: 20250115
  2. CLARITIN [Concomitant]
     Active Substance: LORATADINE
  3. ASCORBIC ACID [Concomitant]
     Active Substance: ASCORBIC ACID
  4. IRON [Concomitant]
     Active Substance: IRON
  5. B12 supplement [Concomitant]

REACTIONS (5)
  - Withdrawal syndrome [None]
  - Pruritus [None]
  - Insomnia [None]
  - Somnolence [None]
  - Brain fog [None]

NARRATIVE: CASE EVENT DATE: 20250115
